FAERS Safety Report 5322921-8 (Version None)
Quarter: 2007Q2

REPORT INFORMATION
  Report Type: 
  Country: None (occurrence: None)
  Receive Date: 20070222
  Receipt Date: 20061122
  Transmission Date: 20071010
  Serious: Yes (Other)
  Sender: FDA-Public Use
  Company Number: 2006134015

PATIENT
  Age: 39 Year
  Sex: Female
  Weight: 58.0604 kg

DRUGS (5)
  1. EXUBERA [Suspect]
     Indication: DIABETES MELLITUS
     Dosage: SLIDING SCALE,INHALATION
     Route: 055
     Dates: start: 20060920
  2. EXUBERA [Suspect]
  3. LIPITOR [Concomitant]
  4. LANTUS [Concomitant]
  5. ASPIRIN [Concomitant]

REACTIONS (2)
  - BLOOD GLUCOSE INCREASED [None]
  - DEVICE MALFUNCTION [None]
